FAERS Safety Report 6467113-4 (Version None)
Quarter: 2009Q4

REPORT INFORMATION
  Report Type: 
  Country: None (occurrence: None)
  Receive Date: 20091202
  Receipt Date: 20091123
  Transmission Date: 20100525
  Serious: Yes (Hospitalization)
  Sender: FDA-Public Use
  Company Number: DK-PFIZER INC-2009301063

PATIENT
  Age: 67 Year
  Sex: Male
  Weight: 94 kg

DRUGS (5)
  1. ZARATOR [Suspect]
     Indication: HYPERCHOLESTEROLAEMIA
     Dosage: 80 MG, 1X/DAY
     Dates: start: 20090930, end: 20091012
  2. SELO-ZOK [Concomitant]
     Dosage: 50 MG, 1X/DAY
     Route: 048
  3. COZAAR [Concomitant]
     Dosage: 100 MG, 1X/DAY
     Route: 048
  4. PLAVIX [Concomitant]
     Dosage: 75 MG, 1X/DAY
     Route: 048
  5. HJERTEMAGNYL ^DAK^ [Concomitant]
     Dosage: 75 MG, 1X/DAY
     Route: 048

REACTIONS (6)
  - ALANINE AMINOTRANSFERASE INCREASED [None]
  - BLOOD ALKALINE PHOSPHATASE INCREASED [None]
  - HEPATIC FUNCTION ABNORMAL [None]
  - JAUNDICE [None]
  - NAUSEA [None]
  - VOMITING [None]
